FAERS Safety Report 7987316-7 (Version None)
Quarter: 2011Q4

REPORT INFORMATION
  Report Type: 
  Country: None (occurrence: None)
  Receive Date: 20111216
  Receipt Date: 20111013
  Transmission Date: 20120403
  Serious: No
  Sender: FDA-Public Use
  Company Number: US-BRISTOL-MYERS SQUIBB COMPANY-16158743

PATIENT
  Sex: Female

DRUGS (2)
  1. ABILIFY [Suspect]
  2. SEROQUEL [Concomitant]

REACTIONS (1)
  - VISION BLURRED [None]
